FAERS Safety Report 18915591 (Version 1)
Quarter: 2021Q1

REPORT INFORMATION
  Report Type: Spontaneous
  Country: US (occurrence: US)
  Receive Date: 20210219
  Receipt Date: 20210219
  Transmission Date: 20210420
  Serious: No
  Sender: FDA-Public Use
  Company Number: US-CIPLA LTD.-2021US00109

PATIENT

DRUGS (2)
  1. DICLOFENAC [Suspect]
     Active Substance: DICLOFENAC
     Indication: ARTHRALGIA
     Dosage: UNK, QID (4 TIMES A DAY)
     Route: 061
     Dates: start: 202012
  2. DICLOFENAC [Suspect]
     Active Substance: DICLOFENAC
     Dosage: UNK, QD (SOMETIMES PATIENT USED TO USE 1 TIME A DAY)
     Route: 061
     Dates: start: 202012

REACTIONS (5)
  - Inappropriate schedule of product administration [Unknown]
  - Rash [Unknown]
  - Off label use [Unknown]
  - Burning sensation [Unknown]
  - Product administered at inappropriate site [Unknown]

NARRATIVE: CASE EVENT DATE: 202012
